FAERS Safety Report 25122036 (Version 2)
Quarter: 2025Q3

REPORT INFORMATION
  Report Type: Spontaneous
  Country: US (occurrence: US)
  Receive Date: 20250326
  Receipt Date: 20250810
  Transmission Date: 20251021
  Serious: No
  Sender: ALEXION PHARMACEUTICALS
  Company Number: US-AstraZeneca-CH-00829994A

PATIENT
  Sex: Male

DRUGS (1)
  1. FARXIGA [Suspect]
     Active Substance: DAPAGLIFLOZIN PROPANEDIOL
     Route: 065

REACTIONS (8)
  - Nausea [Unknown]
  - Dehydration [Unknown]
  - Mass [Unknown]
  - Pain [Unknown]
  - Therapy interrupted [Unknown]
  - Malaise [Unknown]
  - Nausea [Unknown]
  - Swelling [Unknown]
